FAERS Safety Report 5757878-9 (Version None)
Quarter: 2008Q2

REPORT INFORMATION
  Report Type: 
  Country: None (occurrence: None)
  Receive Date: 20080602
  Receipt Date: 20080602
  Transmission Date: 20081010
  Serious: Yes (Other)
  Sender: FDA-Public Use
  Company Number: None

PATIENT
  Sex: Male
  Weight: 86.1834 kg

DRUGS (1)
  1. FENTANYL-100 [Suspect]
     Indication: BACK PAIN
     Dosage: ONE PATCH Q3DAYS

REACTIONS (3)
  - APPLICATION SITE ULCER [None]
  - RASH PRURITIC [None]
  - SIMILAR REACTION ON PREVIOUS EXPOSURE TO DRUG [None]
